FAERS Safety Report 14023823 (Version 1)
Quarter: 2017Q3

REPORT INFORMATION
  Report Type: Spontaneous
  Country: US (occurrence: US)
  Receive Date: 20170929
  Receipt Date: 20170929
  Transmission Date: 20171128
  Serious: No
  Sender: FDA-Public Use
  Company Number: US-JUBILANT CADISTA PHARMACEUTICALS-2017JUB00078

PATIENT
  Age: 56 Year
  Sex: Female
  Weight: 56.69 kg

DRUGS (3)
  1. ADCIRCA [Concomitant]
     Active Substance: TADALAFIL
  2. PREDNISONE. [Suspect]
     Active Substance: PREDNISONE
  3. REMODULIN [Suspect]
     Active Substance: TREPROSTINIL
     Indication: PULMONARY HYPERTENSION
     Dosage: 0.5 ?G/KG, UNK
     Route: 058
     Dates: start: 20110315

REACTIONS (8)
  - Mood altered [Unknown]
  - Arthritis [Unknown]
  - Tendonitis [Unknown]
  - Respiratory disorder [Unknown]
  - Wrist fracture [Unknown]
  - Wheezing [Unknown]
  - Pain [Unknown]
  - Rotator cuff syndrome [Unknown]

NARRATIVE: CASE EVENT DATE: 201702
